FAERS Safety Report 5382958-X (Version None)
Quarter: 2007Q3

REPORT INFORMATION
  Report Type: 
  Country: None (occurrence: None)
  Receive Date: 20070710
  Receipt Date: 20070704
  Transmission Date: 20080115
  Serious: Yes (Life-Threatening)
  Sender: FDA-Public Use
  Company Number: A0647250A

PATIENT
  Age: 20 Year
  Sex: Female

DRUGS (2)
  1. CLAVULIN [Suspect]
     Indication: SELF-MEDICATION
     Route: 065
     Dates: start: 20070412, end: 20070412
  2. DIPYRONE [Suspect]
     Dates: start: 20070412

REACTIONS (2)
  - DIARRHOEA [None]
  - INTENTIONAL OVERDOSE [None]
